FAERS Safety Report 8135593 (Version 3)
Quarter: 2013Q1

REPORT INFORMATION
  Report Type: Spontaneous
  Country: US (occurrence: US)
  Receive Date: 20110914
  Receipt Date: 20130214
  Transmission Date: 20140127
  Serious: Yes (Other)
  Sender: FDA-Public Use
  Company Number: US-ROCHE-802108

PATIENT
  Age: 40 Year
  Sex: Female
  Weight: 72.64 kg

DRUGS (2)
  1. ACCUTANE [Suspect]
     Indication: ACNE
     Route: 065
     Dates: start: 20030826, end: 20040120
  2. ESTRACE [Concomitant]
     Route: 065
     Dates: start: 1996

REACTIONS (7)
  - Inflammatory bowel disease [Unknown]
  - Depression [Not Recovered/Not Resolved]
  - Injury [Unknown]
  - Rectal polyp [Unknown]
  - Irritable bowel syndrome [Unknown]
  - Upper respiratory tract infection [Unknown]
  - Headache [Unknown]
